FAERS Safety Report 18555049 (Version 2)
Quarter: 2020Q4

REPORT INFORMATION
  Report Type: Spontaneous
  Country: US (occurrence: US)
  Receive Date: 20201127
  Receipt Date: 20201215
  Transmission Date: 20210114
  Serious: Yes (Other)
  Sender: FDA-Public Use
  Company Number: US-TEVA-2020-US-1851411

PATIENT
  Age: 67 Year
  Sex: Male

DRUGS (3)
  1. BENZATROPINE [Suspect]
     Active Substance: BENZTROPINE
     Indication: EXTRAPYRAMIDAL DISORDER
     Dosage: HIS GASTROENTEROLOGIST ALSO PRESCRIBED HIM BENZTROPINE, LEADING TO ADMINISTRATION OF DOUBLE HIS P...
     Route: 048
  2. HALOPERIDOL DECANOATE. [Suspect]
     Active Substance: HALOPERIDOL DECANOATE
     Indication: SCHIZOPHRENIA
     Route: 030
  3. BENZATROPINE [Suspect]
     Active Substance: BENZTROPINE
     Indication: EXTRAPYRAMIDAL DISORDER
     Dosage: 1 MILLIGRAM DAILY; 0.5 MG TWO TIMES A DAY AS NEEDED
     Route: 048

REACTIONS (5)
  - Constipation [Recovered/Resolved]
  - Product prescribing error [Unknown]
  - Abdominal pain lower [Recovered/Resolved]
  - Dysuria [Recovered/Resolved]
  - Extra dose administered [Unknown]
